FAERS Safety Report 11892773 (Version 1)
Quarter: 2016Q1

REPORT INFORMATION
  Report Type: Spontaneous
  Country: US (occurrence: US)
  Receive Date: 20160106
  Receipt Date: 20160106
  Transmission Date: 20160526
  Serious: No
  Sender: FDA-Public Use
  Company Number: US-PFIZER INC-2016001961

PATIENT
  Sex: Male

DRUGS (2)
  1. VIAGRA [Suspect]
     Active Substance: SILDENAFIL CITRATE
     Dosage: UNK
  2. DOXAZOSIN MESILATE [Interacting]
     Active Substance: DOXAZOSIN MESYLATE
     Dosage: UNK, DAILY

REACTIONS (2)
  - Drug interaction [Unknown]
  - Drug ineffective [Unknown]
